FAERS Safety Report 8246679-8 (Version None)
Quarter: 2012Q1

REPORT INFORMATION
  Report Type: 
  Country: None (occurrence: None)
  Receive Date: 20120330
  Receipt Date: 20120320
  Transmission Date: 20120608
  Serious: Yes (Hospitalization, Disabling)
  Sender: FDA-Public Use
  Company Number: US-SP-2012-03359

PATIENT
  Sex: Male

DRUGS (11)
  1. LEVOTHYROXINE SODIUM [Concomitant]
     Route: 048
  2. TOPROL-XL [Concomitant]
  3. GENTAMICIN [Concomitant]
     Route: 042
  4. PLAVIX [Concomitant]
     Route: 048
  5. AVODART [Concomitant]
  6. THERACYS [Suspect]
     Indication: BLADDER CANCER
     Route: 065
     Dates: start: 20100322, end: 20100708
  7. LIPITOR [Concomitant]
  8. ATORVASTATIN [Concomitant]
  9. DUTASTERIDE [Concomitant]
     Route: 048
  10. IMDUR [Concomitant]
     Route: 048
  11. METOPROLOL SUCCINATE [Concomitant]
     Route: 048

REACTIONS (25)
  - SINUSITIS [None]
  - URINARY TRACT INFECTION [None]
  - ACUTE LUNG INJURY [None]
  - CHILLS [None]
  - SEPSIS [None]
  - CHEST PAIN [None]
  - PNEUMONIA [None]
  - EATING DISORDER [None]
  - DYSURIA [None]
  - DIARRHOEA [None]
  - INSTILLATION SITE PAIN [None]
  - RESPIRATORY DISTRESS [None]
  - CREPITATIONS [None]
  - PULMONARY CONGESTION [None]
  - PYREXIA [None]
  - RHINORRHOEA [None]
  - PULMONARY EMBOLISM [None]
  - GAIT DISTURBANCE [None]
  - OROPHARYNGEAL CANDIDIASIS [None]
  - MYALGIA [None]
  - COUGH [None]
  - NAUSEA [None]
  - HYPOXIA [None]
  - HEADACHE [None]
  - VOMITING [None]
